FAERS Safety Report 14847895 (Version 1)
Quarter: 2018Q2

REPORT INFORMATION
  Report Type: Spontaneous
  Country: US (occurrence: US)
  Receive Date: 20180504
  Receipt Date: 20180504
  Transmission Date: 20180711
  Serious: No
  Sender: FDA-Public Use
  Company Number: US-BAYER-2018-084836

PATIENT
  Sex: Female

DRUGS (2)
  1. TOPROL XL [Concomitant]
     Active Substance: METOPROLOL SUCCINATE
  2. ALEVE [Suspect]
     Active Substance: NAPROXEN SODIUM
     Dosage: AS NEEDED
     Route: 048

REACTIONS (4)
  - Product physical issue [None]
  - Poor quality drug administered [None]
  - Wrong technique in product usage process [Unknown]
  - Product lot number issue [None]
